FAERS Safety Report 8104050-3 (Version None)
Quarter: 2012Q1

REPORT INFORMATION
  Report Type: 
  Country: None (occurrence: None)
  Receive Date: 20120201
  Receipt Date: 20120127
  Transmission Date: 20120608
  Serious: No
  Sender: FDA-Public Use
  Company Number: US-PFIZER INC-2012006926

PATIENT
  Sex: Female

DRUGS (2)
  1. ARTHROTEC [Suspect]
     Indication: ARTHRITIS
     Dosage: UNK
     Dates: start: 20000101
  2. LIPITOR [Suspect]
     Dosage: UNK
     Dates: start: 19980101

REACTIONS (2)
  - FATIGUE [None]
  - NERVOUSNESS [None]
